FAERS Safety Report 17969463 (Version 1)
Quarter: 2020Q3

REPORT INFORMATION
  Report Type: Spontaneous
  Country: US (occurrence: US)
  Receive Date: 20200701
  Receipt Date: 20200701
  Transmission Date: 20201103
  Serious: Yes (Other)
  Sender: FDA-Public Use
  Company Number: US-PFIZER INC-2020250649

PATIENT
  Age: 66 Year
  Sex: Female
  Weight: 110.22 kg

DRUGS (2)
  1. XELJANZ XR [Suspect]
     Active Substance: TOFACITINIB CITRATE
     Indication: RHEUMATOID ARTHRITIS
     Dosage: 11 MG, DAILY
     Dates: start: 2018, end: 2018
  2. XELJANZ XR [Suspect]
     Active Substance: TOFACITINIB CITRATE
     Dosage: 11 MG, ALTERNATE DAY
     Dates: start: 20200615

REACTIONS (7)
  - Lung carcinoma cell type unspecified stage I [Recovered/Resolved]
  - Dyspnoea [Recovering/Resolving]
  - Respiratory tract procedural complication [Not Recovered/Not Resolved]
  - Condition aggravated [Unknown]
  - Immune system disorder [Unknown]
  - Intentional product misuse [Unknown]
  - Exercise tolerance decreased [Not Recovered/Not Resolved]

NARRATIVE: CASE EVENT DATE: 20200615
